FAERS Safety Report 4513239-1 (Version None)
Quarter: 2004Q4

REPORT INFORMATION
  Report Type: 
  Country: None (occurrence: None)
  Receive Date: 20041130
  Receipt Date: 20041119
  Transmission Date: 20050328
  Serious: Yes (Death, Hospitalization)
  Sender: FDA-Public Use
  Company Number: FR-MERCK-0411FRA00079

PATIENT
  Age: 72 Year
  Sex: Female
  Weight: 90 kg

DRUGS (8)
  1. VIOXX [Suspect]
     Indication: RHEUMATOID ARTHRITIS
     Route: 048
     Dates: start: 20040825, end: 20040831
  2. METHYLPREDNISOLONE SODIUM SUCCINATE [Suspect]
     Indication: MONARTHRITIS
     Route: 041
     Dates: start: 20040822, end: 20040830
  3. PERINDOPRIL ERBUMINE [Suspect]
     Indication: CARDIAC FAILURE CONGESTIVE
     Route: 048
     Dates: start: 19951011, end: 20040831
  4. NITROGLYCERIN [Suspect]
     Indication: CORONARY ARTERY DISEASE
     Route: 061
     Dates: start: 19951011, end: 20041031
  5. ETANERCEPT [Suspect]
     Indication: RHEUMATOID ARTHRITIS
     Route: 058
     Dates: start: 20010611, end: 20040821
  6. ASPIRIN LYSINE [Suspect]
     Indication: THROMBOSIS PROPHYLAXIS
     Route: 048
     Dates: start: 19951011, end: 20040831
  7. VERAPAMIL HYDROCHLORIDE [Concomitant]
     Route: 048
     Dates: start: 20040524
  8. ROSUVASTATIN CALCIUM [Concomitant]
     Indication: HYPERCHOLESTEROLAEMIA
     Route: 048
     Dates: start: 20040524

REACTIONS (3)
  - ILEAL PERFORATION [None]
  - PERITONITIS [None]
  - PNEUMOPERITONEUM [None]
